FAERS Safety Report 5367790-5 (Version None)
Quarter: 2007Q2

REPORT INFORMATION
  Report Type: 
  Country: None (occurrence: None)
  Receive Date: 20070622
  Receipt Date: 20070618
  Transmission Date: 20071010
  Serious: Yes (Hospitalization)
  Sender: FDA-Public Use
  Company Number: FR-BRISTOL-MYERS SQUIBB COMPANY-13820527

PATIENT
  Age: 48 Year
  Sex: Female

DRUGS (3)
  1. REYATAZ [Suspect]
     Indication: HIV INFECTION
     Route: 048
     Dates: start: 20060706, end: 20070510
  2. ZIAGEN [Suspect]
     Dates: start: 20060505, end: 20070510
  3. VIREAD [Suspect]
     Dates: start: 20060530, end: 20070510

REACTIONS (1)
  - HEPATITIS [None]
